FAERS Safety Report 25352873 (Version 2)
Quarter: 2025Q2

REPORT INFORMATION
  Report Type: Spontaneous
  Country: GB (occurrence: GB)
  Receive Date: 20250523
  Receipt Date: 20250530
  Transmission Date: 20250717
  Serious: No
  Sender: IDORSIA PHARMACEUTICALS
  Company Number: GB-IDORSIA-010395-2025-GB

PATIENT
  Age: 65 Year
  Sex: Male
  Weight: 76 kg

DRUGS (1)
  1. QUVIVIQ [Suspect]
     Active Substance: DARIDOREXANT
     Indication: Insomnia
     Dosage: 50 MG, QD
     Route: 065
     Dates: start: 20250317

REACTIONS (2)
  - Rotator cuff repair [Unknown]
  - Tendon rupture [Unknown]
